FAERS Safety Report 23546816 (Version 1)
Quarter: 2024Q1

REPORT INFORMATION
  Report Type: Spontaneous
  Country: US (occurrence: US)
  Receive Date: 20240221
  Receipt Date: 20240221
  Transmission Date: 20240410
  Serious: No
  Sender: FDA-Public Use
  Company Number: US-SA-SAC20240216001210

PATIENT
  Age: 48 Year
  Sex: Female

DRUGS (1)
  1. KEVZARA [Suspect]
     Active Substance: SARILUMAB
     Indication: Rheumatoid arthritis
     Dosage: 200 MG, QOW
     Route: 058
     Dates: start: 202310

REACTIONS (8)
  - Joint swelling [Unknown]
  - Arthralgia [Unknown]
  - Muscular weakness [Unknown]
  - Ear infection [Not Recovered/Not Resolved]
  - Swelling face [Unknown]
  - Tinnitus [Unknown]
  - Neck pain [Unknown]
  - Pain in extremity [Unknown]
